FAERS Safety Report 5006107-2 (Version None)
Quarter: 2006Q2

REPORT INFORMATION
  Report Type: 
  Country: None (occurrence: None)
  Receive Date: 20060518
  Receipt Date: 20060511
  Transmission Date: 20061013
  Serious: Yes (Other)
  Sender: FDA-Public Use
  Company Number: DE-MERCK-0605DEU00106

PATIENT
  Age: 37 Year
  Sex: Female

DRUGS (2)
  1. PROPECIA [Suspect]
     Indication: ALOPECIA
     Route: 048
     Dates: start: 20050101, end: 20051201
  2. PROPECIA [Suspect]
     Route: 048
     Dates: start: 20060308, end: 20060509

REACTIONS (3)
  - ABORTION SPONTANEOUS [None]
  - DRUG ADMINISTRATION ERROR [None]
  - DRUG EXPOSURE BEFORE PREGNANCY [None]
